FAERS Safety Report 5658533-6 (Version None)
Quarter: 2008Q1

REPORT INFORMATION
  Report Type: 
  Country: None (occurrence: None)
  Receive Date: 20080310
  Receipt Date: 20070306
  Transmission Date: 20080703
  Serious: No
  Sender: FDA-Public Use
  Company Number: US-BAYER-200710710BCC

PATIENT
  Age: 16 Year
  Sex: Male
  Weight: 69 kg

DRUGS (2)
  1. ALEVE [Suspect]
     Indication: PAIN
     Dosage: UNIT DOSE: 220 MG
     Route: 048
     Dates: start: 20070306
  2. TYLENOL (CAPLET) [Concomitant]
     Dosage: UNIT DOSE: 500 MG
     Route: 048
     Dates: start: 20070306

REACTIONS (1)
  - NO ADVERSE EVENT [None]
